FAERS Safety Report 9602168 (Version 1)
Quarter: 2013Q4

REPORT INFORMATION
  Report Type: Spontaneous
  Country: GB (occurrence: None)
  Receive Date: 20131003
  Receipt Date: 20131003
  Transmission Date: 20140711
  Serious: Yes (Other)
  Sender: FDA-Public Use
  Company Number: GB-ALKEM-000175

PATIENT
  Age: 78 Year
  Sex: Female

DRUGS (8)
  1. CEPHALEXIN [Suspect]
     Indication: INFECTIVE EXACERBATION OF CHRONIC OBSTRUCTIVE AIRWAYS DISEASE
     Dates: start: 201210
  2. PHYLLOCONTIN CONTINUS(PHYLLOCONTIN CONTINUS) [Concomitant]
  3. TEMAZEPAM(TEMAZEPAM) [Concomitant]
  4. NICORANDIL(NICORANDIL) [Concomitant]
  5. DOXYCYCLINE(DOXYCYCLINE) [Concomitant]
  6. ATORVASTATIN(ATORVASTATIN) [Concomitant]
  7. ALENDRONIC ACID (ALENDRONIC ACID) [Concomitant]
  8. PREDNISOLONE(PREDNISOLONE) [Concomitant]

REACTIONS (2)
  - Treatment failure [None]
  - Neutrophilia [None]
